FAERS Safety Report 4442703-9 (Version None)
Quarter: 2004Q3

REPORT INFORMATION
  Report Type: 
  Country: None (occurrence: None)
  Receive Date: 20040903
  Receipt Date: 20040514
  Transmission Date: 20050211
  Serious: Yes (Other)
  Sender: FDA-Public Use
  Company Number: 2004UW10248

PATIENT
  Age: 59 Year
  Sex: Female

DRUGS (6)
  1. ATACAND [Suspect]
     Dosage: 16 MG QD PO
     Route: 048
     Dates: start: 20030701, end: 20040421
  2. CRESTOR [Suspect]
     Dosage: 10 MG QD PO
     Route: 048
     Dates: start: 20040116
  3. IMURAN [Concomitant]
  4. ALPHAGAN [Concomitant]
  5. FOLIC ACID [Concomitant]
  6. PAXIL [Concomitant]

REACTIONS (4)
  - BLOOD CREATININE INCREASED [None]
  - BLOOD PRESSURE DECREASED [None]
  - CREATININE RENAL CLEARANCE DECREASED [None]
  - FATIGUE [None]
